FAERS Safety Report 15572434 (Version 1)
Quarter: 2018Q4

REPORT INFORMATION
  Report Type: Spontaneous
  Country: AU (occurrence: AU)
  Receive Date: 20181031
  Receipt Date: 20181031
  Transmission Date: 20190205
  Serious: Yes (Hospitalization, Other)
  Sender: FDA-Public Use
  Company Number: AU-JNJFOC-20181034501

PATIENT
  Age: 59 Year
  Sex: Male

DRUGS (1)
  1. IBRUTINIB [Suspect]
     Active Substance: IBRUTINIB
     Indication: CHRONIC LYMPHOCYTIC LEUKAEMIA
     Route: 048
     Dates: start: 201511

REACTIONS (6)
  - Disseminated cryptococcosis [Unknown]
  - White blood cell count increased [Unknown]
  - Acute myocardial infarction [Unknown]
  - Respiratory failure [Unknown]
  - Pyrexia [Unknown]
  - Atrial fibrillation [Unknown]
